FAERS Safety Report 9729026 (Version 1)
Quarter: 2013Q4

REPORT INFORMATION
  Report Type: Spontaneous
  Country: US (occurrence: US)
  Receive Date: 20131204
  Receipt Date: 20131204
  Transmission Date: 20140711
  Serious: No
  Sender: FDA-Public Use
  Company Number: US-TEVA-448895USA

PATIENT
  Age: 27 Year
  Sex: Female
  Weight: 81.72 kg

DRUGS (4)
  1. PLAN B ONE-STEP [Suspect]
     Indication: POST COITAL CONTRACEPTION
     Dosage: 1.5 MILLIGRAM DAILY;
     Route: 048
     Dates: start: 20131125, end: 20131125
  2. MULTIVITAMIN [Concomitant]
     Indication: NUTRITIONAL SUPPLEMENTATION
  3. VITAMIN E [Concomitant]
     Indication: NUTRITIONAL SUPPLEMENTATION
  4. VITAMIN B-12 [Concomitant]
     Indication: NUTRITIONAL SUPPLEMENTATION

REACTIONS (1)
  - Pelvic pain [Recovered/Resolved]
